FAERS Safety Report 9778527 (Version 1)
Quarter: 2013Q4

REPORT INFORMATION
  Report Type: Spontaneous
  Country: US (occurrence: None)
  Receive Date: 20131219
  Receipt Date: 20131219
  Transmission Date: 20140711
  Serious: Yes (Hospitalization)
  Sender: FDA-Public Use
  Company Number: 9039997-2013-00091

PATIENT
  Age: 71 Year
  Sex: Male

DRUGS (1)
  1. LEVULAN [Suspect]
     Indication: ACTINIC KERATOSIS
     Dosage: 20% SINGLE, TOPICAL
     Route: 061
     Dates: start: 20131126

REACTIONS (7)
  - Paraesthesia [None]
  - Chills [None]
  - Abasia [None]
  - Pyrexia [None]
  - Urinary incontinence [None]
  - Encephalomyelitis [None]
  - Viral infection [None]
